FAERS Safety Report 5579325-2 (Version None)
Quarter: 2007Q4

REPORT INFORMATION
  Report Type: 
  Country: None (occurrence: None)
  Receive Date: 20071221
  Receipt Date: 20071127
  Transmission Date: 20080405
  Serious: Yes (Other)
  Sender: FDA-Public Use
  Company Number: 2007336360

PATIENT
  Age: 36 Year
  Sex: Male
  Weight: 88.4514 kg

DRUGS (1)
  1. ROGAINE 5 [Suspect]
     Indication: ALOPECIA
     Dosage: 1ML, AS REQUIRED, TOPICAL
     Route: 061
     Dates: start: 20070115, end: 20070228

REACTIONS (5)
  - DIZZINESS [None]
  - HYPOTENSION [None]
  - JAW FRACTURE [None]
  - SYNCOPE [None]
  - TOOTH LOSS [None]
